FAERS Safety Report 8110939-1 (Version None)
Quarter: 2012Q1

REPORT INFORMATION
  Report Type: 
  Country: None (occurrence: None)
  Receive Date: 20120203
  Receipt Date: 20110919
  Transmission Date: 20120608
  Serious: Yes (Hospitalization)
  Sender: FDA-Public Use
  Company Number: US-GLAXOSMITHKLINE-A0884285A

PATIENT
  Age: 22 Year
  Sex: Female

DRUGS (3)
  1. STRATTERA [Concomitant]
  2. LAMICTAL [Suspect]
     Indication: CONVULSION
     Dosage: 25MG TWICE PER DAY
     Route: 048
     Dates: start: 20071114, end: 20071126
  3. FOLIC ACID [Concomitant]

REACTIONS (5)
  - STEVENS-JOHNSON SYNDROME [None]
  - ERYTHEMA MULTIFORME [None]
  - HYPERSENSITIVITY [None]
  - TRANSAMINASES INCREASED [None]
  - DRUG HYPERSENSITIVITY [None]
